FAERS Safety Report 6638967-3 (Version None)
Quarter: 2010Q1

REPORT INFORMATION
  Report Type: 
  Country: None (occurrence: None)
  Receive Date: 20100316
  Receipt Date: 20100316
  Transmission Date: 20100710
  Serious: Yes (Hospitalization, Disabling)
  Sender: FDA-Public Use
  Company Number: None

PATIENT
  Sex: Female
  Weight: 108.8633 kg

DRUGS (1)
  1. NUVARING [Suspect]
     Dosage: SEVERAL MONTHS

REACTIONS (1)
  - DEEP VEIN THROMBOSIS [None]
